FAERS Safety Report 5677431-5 (Version None)
Quarter: 2008Q1

REPORT INFORMATION
  Report Type: 
  Country: None (occurrence: None)
  Receive Date: 20080318
  Receipt Date: 20080229
  Transmission Date: 20080703
  Serious: Yes (Other)
  Sender: FDA-Public Use
  Company Number: S08-CAN-00928-01

PATIENT
  Sex: Female

DRUGS (2)
  1. CELEXA [Suspect]
  2. BEER (ETHANOL) [Concomitant]

REACTIONS (7)
  - AGGRESSION [None]
  - ANXIETY [None]
  - CARDIAC DISORDER [None]
  - INSOMNIA [None]
  - MOOD SWINGS [None]
  - RESTLESS LEGS SYNDROME [None]
  - SUICIDE ATTEMPT [None]
